FAERS Safety Report 8069320-6 (Version None)
Quarter: 2012Q1

REPORT INFORMATION
  Report Type: 
  Country: None (occurrence: None)
  Receive Date: 20120125
  Receipt Date: 20120119
  Transmission Date: 20120608
  Serious: Yes (Other)
  Sender: FDA-Public Use
  Company Number: US-JNJFOC-20120108814

PATIENT
  Sex: Female

DRUGS (12)
  1. DEPO-PROVERA [Suspect]
     Indication: CONTRACEPTION
     Dosage: EVERY 3 MONTHS
     Route: 065
  2. AMBIEN [Concomitant]
     Indication: SLEEP DISORDER
     Route: 065
  3. RISPERDAL [Suspect]
     Route: 048
  4. RISPERDAL [Suspect]
     Indication: SCHIZOPHRENIA
     Route: 048
  5. RISPERDAL [Suspect]
     Route: 048
  6. RISPERIDONE [Suspect]
     Indication: SCHIZOPHRENIA
     Route: 065
     Dates: end: 20110701
  7. TOPAMAX [Concomitant]
     Indication: ANXIETY
     Route: 048
  8. CYMBALTA [Suspect]
     Indication: DEPRESSION
     Route: 065
  9. RISPERIDONE [Suspect]
     Indication: BIPOLAR DISORDER
     Route: 065
     Dates: end: 20110701
  10. RISPERDAL [Suspect]
     Indication: BIPOLAR DISORDER
     Route: 048
  11. DIET MEDICATION [Suspect]
     Indication: WEIGHT DECREASED
     Route: 065
  12. TOPIRAMATE [Concomitant]
     Indication: ANXIETY
     Route: 048

REACTIONS (8)
  - PRODUCT QUALITY ISSUE [None]
  - THERAPY CESSATION [None]
  - DEPRESSION [None]
  - DYSPNOEA [None]
  - RHEUMATOID ARTHRITIS [None]
  - HYPOKINESIA [None]
  - ADVERSE EVENT [None]
  - HYPERSENSITIVITY [None]
